FAERS Safety Report 24264778 (Version 1)
Quarter: 2024Q3

REPORT INFORMATION
  Report Type: Report from Study
  Country: CA (occurrence: CA)
  Receive Date: 20240829
  Receipt Date: 20240829
  Transmission Date: 20241017
  Serious: Yes (Hospitalization)
  Sender: BAUSCH AND LOMB
  Company Number: CA-BAUSCH-BL-2024-012986

PATIENT
  Age: 45 Year
  Sex: Female

DRUGS (1)
  1. RIFAXIMIN [Suspect]
     Active Substance: RIFAXIMIN
     Indication: Hepatic cirrhosis
     Route: 065
     Dates: start: 20240602, end: 20240710

REACTIONS (5)
  - Liver operation [Unknown]
  - Hypervolaemia [Unknown]
  - Ascites [Unknown]
  - Therapy interrupted [Unknown]
  - Inability to afford medication [Unknown]

NARRATIVE: CASE EVENT DATE: 20240101
